FAERS Safety Report 8849754 (Version 2)
Quarter: 2013Q2

REPORT INFORMATION
  Report Type: Spontaneous
  Country: US (occurrence: None)
  Receive Date: 20120426
  Receipt Date: 20120703
  Transmission Date: 20140414
  Serious: Yes (Other)
  Sender: FDA-Public Use
  Company Number: PHEH2011US011880

PATIENT
  Age: 38 Year
  Sex: Female

DRUGS (4)
  1. GILENYA [Suspect]
     Indication: RELAPSING-REMITTING MULTIPLE SCLEROSIS
     Route: 048
     Dates: start: 20111208, end: 20111220
  2. OXYBUTYNIN (OXYBUTYNIN) [Concomitant]
  3. BACLOFEN (BACLOFEN) [Concomitant]
  4. XANAX (ALPRAZOLAM) [Concomitant]

REACTIONS (11)
  - Macular oedema [None]
  - Balance disorder [None]
  - Eye swelling [None]
  - Eye pruritus [None]
  - Eye inflammation [None]
  - Fatigue [None]
  - Somnolence [None]
  - Malaise [None]
  - Abasia [None]
  - Vision blurred [None]
  - Visual impairment [None]
